FAERS Safety Report 13333558 (Version 1)
Quarter: 2017Q1

REPORT INFORMATION
  Report Type: Spontaneous
  Country: US (occurrence: US)
  Receive Date: 20170314
  Receipt Date: 20170314
  Transmission Date: 20170428
  Serious: No
  Sender: FDA-Public Use
  Company Number: US-TAKEDA-2017MPI001900

PATIENT
  Sex: Male

DRUGS (1)
  1. NINLARO [Suspect]
     Active Substance: IXAZOMIB
     Indication: PRODUCT USED FOR UNKNOWN INDICATION
     Dosage: 4 MG, UNK
     Route: 048

REACTIONS (3)
  - Drug dose omission [Unknown]
  - Product packaging quantity issue [Unknown]
  - No adverse event [Unknown]

NARRATIVE: CASE EVENT DATE: 20170302
